FAERS Safety Report 14396902 (Version 1)
Quarter: 2018Q1

REPORT INFORMATION
  Report Type: Report from Study
  Country: JP (occurrence: JP)
  Receive Date: 20180116
  Receipt Date: 20180116
  Transmission Date: 20180509
  Serious: Yes (Hospitalization)
  Sender: FDA-Public Use
  Company Number: JP-TEVA-2018-JP-843701

PATIENT
  Age: 40 Year
  Sex: Male

DRUGS (4)
  1. RITUXIMAB. [Suspect]
     Active Substance: RITUXIMAB
     Indication: DIFFUSE LARGE B-CELL LYMPHOMA
     Dosage: 375MG/M2
     Route: 065
  2. RANUMUSTINE [Suspect]
     Active Substance: RANIMUSTINE
     Indication: DIFFUSE LARGE B-CELL LYMPHOMA
     Dosage: 250MG/M2 ON DAY 7 AND DAY 2 PRIOR TO AHSCT
     Route: 065
  3. ETOPOSIDE. [Suspect]
     Active Substance: ETOPOSIDE
     Indication: DIFFUSE LARGE B-CELL LYMPHOMA
     Dosage: 400MG/M2 FROM DAY 6 TO DAY 3 PRIOR TO AHSCT
     Route: 065
  4. MELPHALAN. [Suspect]
     Active Substance: MELPHALAN
     Indication: DIFFUSE LARGE B-CELL LYMPHOMA
     Dosage: 140MG/M2 ON DAY 1 PRIOR TO AHSCT
     Route: 065

REACTIONS (10)
  - Hypoxia [Recovered/Resolved]
  - Pericardial effusion [Recovered/Resolved]
  - Haemolytic anaemia [Recovered/Resolved]
  - Hypertension [Recovered/Resolved]
  - Cardiac failure [Recovered/Resolved]
  - Acute kidney injury [Recovering/Resolving]
  - Ventricular hypokinesia [Recovered/Resolved]
  - Hyperaesthesia [Recovered/Resolved]
  - Allodynia [Recovered/Resolved]
  - Thrombotic microangiopathy [Recovering/Resolving]
